FAERS Safety Report 18669373 (Version 2)
Quarter: 2020Q4

REPORT INFORMATION
  Report Type: Report from Study
  Country: CA (occurrence: CA)
  Receive Date: 20201228
  Receipt Date: 20201231
  Transmission Date: 20210114
  Serious: Yes (Hospitalization, Other)
  Sender: FDA-Public Use
  Company Number: CA-SAMSUNG BIOEPIS-SB-2020-38044

PATIENT
  Age: 58 Year
  Sex: Female
  Weight: 60.6 kg

DRUGS (3)
  1. IRON [Suspect]
     Active Substance: IRON
     Indication: PRODUCT USED FOR UNKNOWN INDICATION
     Dosage: UNKNOWN, PILL
     Route: 065
  2. RENFLEXIS [Suspect]
     Active Substance: INFLIXIMAB-ABDA
     Route: 042
     Dates: start: 20200226
  3. RENFLEXIS [Suspect]
     Active Substance: INFLIXIMAB-ABDA
     Indication: COLITIS ULCERATIVE
     Route: 065

REACTIONS (5)
  - Constipation [Unknown]
  - Haematochezia [Unknown]
  - Faeces discoloured [Unknown]
  - Plasma cell myeloma [Unknown]
  - Product use issue [Unknown]

NARRATIVE: CASE EVENT DATE: 20201204
